FAERS Safety Report 4345801-3 (Version None)
Quarter: 2004Q2

REPORT INFORMATION
  Report Type: 
  Country: None (occurrence: None)
  Receive Date: 20040421
  Receipt Date: 20040409
  Transmission Date: 20050107
  Serious: Yes (Other)
  Sender: FDA-Public Use
  Company Number: CA-JNJFOC-20040302774

PATIENT
  Age: 83 Year
  Sex: Male
  Weight: 77 kg

DRUGS (9)
  1. REMICADE [Suspect]
     Indication: RHEUMATOID ARTHRITIS
     Dosage: 300 MG, INTRAVENOUS
     Route: 042
     Dates: start: 20031002, end: 20031002
  2. DIAVAN (VALSARTAN) [Concomitant]
  3. PREDNISONE [Concomitant]
  4. PLAQUENIL [Concomitant]
  5. ACETYLSALICYLIC ACID SRT [Concomitant]
  6. NOVO HYDRAZIDE (HYDROCHLOROTHIAZIDE) [Concomitant]
  7. FOLIC ACID [Concomitant]
  8. VITAMIN D [Concomitant]
  9. TYLENOL W/ CODEINE NO. 3 [Concomitant]

REACTIONS (1)
  - EJECTION FRACTION DECREASED [None]
